FAERS Safety Report 21764871 (Version 1)
Quarter: 2022Q4

REPORT INFORMATION
  Report Type: Report from Study
  Country: US (occurrence: US)
  Receive Date: 20221222
  Receipt Date: 20221222
  Transmission Date: 20230113
  Serious: Yes (Other)
  Sender: FDA-Public Use
  Company Number: US-BEH-2022153454

PATIENT
  Age: 27 Year
  Sex: Male

DRUGS (1)
  1. PRIVIGEN [Suspect]
     Active Substance: HUMAN IMMUNOGLOBULIN G
     Indication: Dermatomyositis
     Dosage: UNK
     Route: 042
     Dates: start: 201803, end: 201906

REACTIONS (19)
  - Vein rupture [Unknown]
  - Infusion site bruising [Unknown]
  - Infusion site pain [Unknown]
  - Headache [Unknown]
  - Meningitis aseptic [Unknown]
  - Malaise [Unknown]
  - Pain [Unknown]
  - Pain in extremity [Unknown]
  - Arthralgia [Unknown]
  - Bone pain [Unknown]
  - Hypersensitivity [Unknown]
  - Injection site reaction [Unknown]
  - Pyrexia [Unknown]
  - Chills [Unknown]
  - Palpitations [Unknown]
  - Tachycardia [Unknown]
  - Hypertension [Unknown]
  - No adverse event [Unknown]
  - Off label use [Unknown]
